FAERS Safety Report 9487631 (Version 2)
Quarter: 2013Q3

REPORT INFORMATION
  Report Type: Spontaneous
  Country: US (occurrence: US)
  Receive Date: 20130725
  Receipt Date: 20130725
  Transmission Date: 20140515
  Serious: Yes (Hospitalization)
  Sender: FDA-Public Use
  Company Number: US-GLAXOSMITHKLINE-A0840328A

PATIENT
  Age: 60 Year
  Sex: Female

DRUGS (7)
  1. AVANDIA [Suspect]
     Indication: TYPE 2 DIABETES MELLITUS
     Dosage: 4MG PER DAY
     Route: 048
     Dates: start: 2002, end: 20070910
  2. INSULIN [Concomitant]
  3. BENAZEPRIL [Concomitant]
  4. HCTZ [Concomitant]
  5. GLUCOPHAGE [Concomitant]
  6. ATENOLOL [Concomitant]
  7. SIMVASTATIN [Concomitant]

REACTIONS (3)
  - Fracture [Unknown]
  - Femur fracture [Unknown]
  - Humerus fracture [Unknown]
